FAERS Safety Report 9891252 (Version 1)
Quarter: 2014Q1

REPORT INFORMATION
  Report Type: Spontaneous
  Country: US (occurrence: None)
  Receive Date: 20140211
  Receipt Date: 20140211
  Transmission Date: 20141002
  Serious: Yes (Hospitalization, Disabling, Other)
  Sender: FDA-Public Use
  Company Number: None

PATIENT
  Age: 13 Year
  Sex: Male
  Weight: 56.7 kg

DRUGS (1)
  1. PROZAC [Suspect]
     Route: 048

REACTIONS (4)
  - Anxiety [None]
  - Hallucination [None]
  - Dizziness [None]
  - Blindness [None]
